FAERS Safety Report 5293058-1 (Version None)
Quarter: 2007Q2

REPORT INFORMATION
  Report Type: 
  Country: None (occurrence: None)
  Receive Date: 20070411
  Receipt Date: 20070328
  Transmission Date: 20071010
  Serious: Yes (Other)
  Sender: FDA-Public Use
  Company Number: ESWYE294302APR07

PATIENT

DRUGS (2)
  1. ENBREL [Suspect]
     Indication: PSORIASIS
     Dosage: UNKNOWM
     Route: 058
  2. ISONIAZID [Suspect]
     Indication: PROPHYLAXIS
     Dosage: UNKNOWN

REACTIONS (1)
  - TRANSAMINASES INCREASED [None]
